FAERS Safety Report 23213090 (Version 1)
Quarter: 2023Q4

REPORT INFORMATION
  Report Type: Other
  Country: None (occurrence: CH)
  Receive Date: 20231121
  Receipt Date: 20231121
  Transmission Date: 20240110
  Serious: Yes (Hospitalization)
  Sender: FDA-Public Use
  Company Number: CH-B.Braun Medical Inc.-2148514

PATIENT
  Age: 54 Year
  Sex: Male

DRUGS (2)
  1. CEFUROXIME SODIUM [Suspect]
     Active Substance: CEFUROXIME SODIUM
     Indication: Antibiotic prophylaxis
  2. LIDOCAINE [Suspect]
     Active Substance: LIDOCAINE

REACTIONS (3)
  - Acute macular neuroretinopathy [None]
  - Toxicity to various agents [None]
  - Off label use [None]
